FAERS Safety Report 13836817 (Version 1)
Quarter: 2017Q3

REPORT INFORMATION
  Report Type: Spontaneous
  Country: US (occurrence: US)
  Receive Date: 20170804
  Receipt Date: 20170804
  Transmission Date: 20171127
  Serious: No
  Sender: FDA-Public Use
  Company Number: US-ROCHE-1092531

PATIENT
  Age: 56 Year
  Sex: Female

DRUGS (2)
  1. BONIVA [Suspect]
     Active Substance: IBANDRONATE SODIUM
     Route: 048
     Dates: start: 20120709, end: 20120725
  2. BONIVA [Suspect]
     Active Substance: IBANDRONATE SODIUM
     Indication: OSTEOPENIA
     Route: 048
     Dates: start: 20120709

REACTIONS (1)
  - Drug administration error [Unknown]

NARRATIVE: CASE EVENT DATE: 20120725
